FAERS Safety Report 5482118-8 (Version None)
Quarter: 2007Q4

REPORT INFORMATION
  Report Type: 
  Country: None (occurrence: None)
  Receive Date: 20071011
  Receipt Date: 20071004
  Transmission Date: 20080405
  Serious: Yes (Other)
  Sender: FDA-Public Use
  Company Number: PHBS2007JP07246

PATIENT
  Age: 64 Year
  Sex: Female
  Weight: 67 kg

DRUGS (1)
  1. GLEEVEC [Suspect]
     Indication: CHRONIC MYELOID LEUKAEMIA
     Dosage: 400 MG/D
     Route: 048
     Dates: start: 20030214

REACTIONS (5)
  - COLON CANCER [None]
  - INTESTINAL POLYP [None]
  - NASOPHARYNGITIS [None]
  - OCCULT BLOOD POSITIVE [None]
  - POLYPECTOMY [None]
